FAERS Safety Report 8878685 (Version 1)
Quarter: 2012Q4

REPORT INFORMATION
  Report Type: 
  Country: DE (occurrence: DE)
  Receive Date: 20121030
  Receipt Date: 20121030
  Transmission Date: 20130627
  Serious: Yes (Other)
  Sender: FDA-Public Use
  Company Number: DE-JNJFOC-20121013130

PATIENT
  Age: 55 Year
  Sex: Male
  Weight: 98 kg

DRUGS (5)
  1. XARELTO [Suspect]
     Indication: ANEURYSM
     Route: 048
  2. XARELTO [Suspect]
     Indication: ANEURYSM
     Route: 048
     Dates: start: 201208, end: 201209
  3. XARELTO [Suspect]
     Indication: MYOCARDIAL INFARCTION
     Route: 048
  4. XARELTO [Suspect]
     Indication: MYOCARDIAL INFARCTION
     Route: 048
     Dates: start: 201208, end: 201209
  5. MARCUMAR [Concomitant]
     Indication: PRODUCT USED FOR UNKNOWN INDICATION
     Route: 065

REACTIONS (3)
  - Renal failure acute [Recovering/Resolving]
  - Myalgia [Recovering/Resolving]
  - Malaise [Recovering/Resolving]
